FAERS Safety Report 12930491 (Version 1)
Quarter: 2016Q4

REPORT INFORMATION
  Report Type: Report from Study
  Country: PK (occurrence: PK)
  Receive Date: 20161110
  Receipt Date: 20161110
  Transmission Date: 20170207
  Serious: Yes (Death, Other)
  Sender: FDA-Public Use
  Company Number: PHHY2016PK134066

PATIENT
  Age: 32 Year
  Sex: Male
  Weight: 120 kg

DRUGS (1)
  1. TASIGNA [Suspect]
     Active Substance: NILOTINIB
     Indication: CHRONIC MYELOID LEUKAEMIA
     Dosage: 400 MG, BID
     Route: 048
     Dates: start: 20141106

REACTIONS (6)
  - Malignant neoplasm progression [Fatal]
  - Cardio-respiratory arrest [Fatal]
  - Chronic myeloid leukaemia [Fatal]
  - Sepsis [Fatal]
  - White blood cell count increased [Unknown]
  - Haemoglobin decreased [Unknown]

NARRATIVE: CASE EVENT DATE: 20160913
